FAERS Safety Report 9630278 (Version 5)
Quarter: 2013Q4

REPORT INFORMATION
  Report Type: Spontaneous
  Country: BR (occurrence: BR)
  Receive Date: 20131017
  Receipt Date: 20131112
  Transmission Date: 20140711
  Serious: Yes (Life-Threatening, Hospitalization, Other)
  Sender: FDA-Public Use
  Company Number: BR-PFIZER INC-2013295741

PATIENT
  Sex: Female

DRUGS (1)
  1. LYRICA [Suspect]
     Indication: NEURALGIA
     Dosage: 75 MG, 1X/DAY
     Route: 048
     Dates: start: 20131009, end: 20131009

REACTIONS (11)
  - Apparent death [Recovered/Resolved]
  - Nervous system disorder [Recovering/Resolving]
  - Myoclonus [Recovered/Resolved]
  - Nystagmus [Recovered/Resolved]
  - Coordination abnormal [Recovered/Resolved]
  - Tremor [Recovered/Resolved]
  - Dizziness [Recovered/Resolved]
  - Dysstasia [Recovered/Resolved]
  - Ataxia [Recovered/Resolved]
  - Amnesia [Recovered/Resolved]
  - Pain [Not Recovered/Not Resolved]
